FAERS Safety Report 18005519 (Version 1)
Quarter: 2020Q3

REPORT INFORMATION
  Report Type: Spontaneous
  Country: US (occurrence: US)
  Receive Date: 20200710
  Receipt Date: 20200710
  Transmission Date: 20201103
  Serious: Yes (Hospitalization, Other)
  Sender: FDA-Public Use
  Company Number: US-HIKMA PHARMACEUTICALS USA INC.-US-H14001-20-03228

PATIENT
  Sex: Male

DRUGS (1)
  1. METHADONE [Suspect]
     Active Substance: METHADONE HYDROCHLORIDE
     Indication: PRODUCT USED FOR UNKNOWN INDICATION
     Route: 065

REACTIONS (11)
  - Drug dependence [Unknown]
  - Tinnitus [Unknown]
  - Insomnia [Unknown]
  - Deafness [Unknown]
  - Stress [Unknown]
  - Hypertension [Unknown]
  - Depression [Unknown]
  - Overdose [Unknown]
  - Neuropathy peripheral [Unknown]
  - Anxiety [Unknown]
  - Colitis ulcerative [Unknown]
